FAERS Safety Report 6111575-9 (Version None)
Quarter: 2009Q1

REPORT INFORMATION
  Report Type: 
  Country: None (occurrence: None)
  Receive Date: 20090309
  Receipt Date: 20070906
  Transmission Date: 20090719
  Serious: Yes (Other)
  Sender: FDA-Public Use
  Company Number: MQ-SEPTODONT-200700206

PATIENT
  Age: 54 Year
  Sex: Male
  Weight: 70 kg

DRUGS (2)
  1. SCANDONEST 3% PLAIN [Suspect]
     Indication: LOCAL ANAESTHESIA
     Dosage: DENTAL,  INTRALIGAMENTAL
     Route: 004
     Dates: start: 20070809
  2. XYLOCONTACT DENTAL CREAM (LIDOCAINE) [Concomitant]

REACTIONS (2)
  - NO REACTION ON PREVIOUS EXPOSURE TO DRUG [None]
  - ORAL MUCOSAL EXFOLIATION [None]
